FAERS Safety Report 11055619 (Version 1)
Quarter: 2015Q2

REPORT INFORMATION
  Report Type: Spontaneous
  Country: US (occurrence: None)
  Receive Date: 20150421
  Receipt Date: 20150421
  Transmission Date: 20150821
  Serious: Yes (Disabling, Other)
  Sender: FDA-Public Use
  Company Number: None

PATIENT
  Sex: Male
  Weight: 99.79 kg

DRUGS (1)
  1. GEODON [Suspect]
     Active Substance: ZIPRASIDONE HYDROCHLORIDE\ZIPRASIDONE MESYLATE
     Indication: BIPOLAR DISORDER
     Dosage: 80-160MG DAY ORAL
     Route: 048
     Dates: start: 2007, end: 201102

REACTIONS (5)
  - Balance disorder [None]
  - Depressed level of consciousness [None]
  - Sensory disturbance [None]
  - Sensory loss [None]
  - Amnesia [None]
